FAERS Safety Report 13183309 (Version 2)
Quarter: 2017Q1

REPORT INFORMATION
  Report Type: Spontaneous
  Country: US (occurrence: US)
  Receive Date: 20170203
  Receipt Date: 20170306
  Transmission Date: 20170428
  Serious: No
  Sender: FDA-Public Use
  Company Number: US-ASTRAZENECA-2017SE08584

PATIENT
  Sex: Male
  Weight: 77.1 kg

DRUGS (1)
  1. PULMICORT FLEXHALER [Suspect]
     Active Substance: BUDESONIDE
     Indication: ASTHMA
     Dosage: 180 MCG 2 PUFFS TWO TIMES A DAY
     Route: 055

REACTIONS (6)
  - Memory impairment [Unknown]
  - Dysphonia [Unknown]
  - Drug dose omission [Unknown]
  - Visual impairment [Unknown]
  - Hypoacusis [Unknown]
  - Device failure [Unknown]
